FAERS Safety Report 6224344-6 (Version None)
Quarter: 2009Q2

REPORT INFORMATION
  Report Type: 
  Country: None (occurrence: None)
  Receive Date: 20090612
  Receipt Date: 20090316
  Transmission Date: 20091009
  Serious: No
  Sender: FDA-Public Use
  Company Number: US-ABBOTT-09P-163-0563002-00

PATIENT
  Sex: Male
  Weight: 120.31 kg

DRUGS (2)
  1. HUMIRA [Suspect]
     Indication: CROHN'S DISEASE
     Dosage: DAY 1
     Dates: start: 20090227, end: 20090227
  2. HUMIRA [Suspect]
     Dates: start: 20090313

REACTIONS (2)
  - ARTHRALGIA [None]
  - NECK INJURY [None]
